FAERS Safety Report 12124091 (Version 2)
Quarter: 2016Q2

REPORT INFORMATION
  Report Type: Spontaneous
  Country: US (occurrence: US)
  Receive Date: 20160229
  Receipt Date: 20160512
  Transmission Date: 20160815
  Serious: No
  Sender: FDA-Public Use
  Company Number: US-PFIZER INC-2016121290

PATIENT
  Age: 82 Year
  Sex: Female
  Weight: 54 kg

DRUGS (6)
  1. ELMIRON [Concomitant]
     Active Substance: PENTOSAN POLYSULFATE SODIUM
     Indication: BLADDER PAIN
     Dosage: 100 MG, 1X/DAY
  2. LIPITOR [Suspect]
     Active Substance: ATORVASTATIN CALCIUM
     Dosage: 10 MG, 1X/DAY
     Route: 048
  3. IMDUR [Concomitant]
     Active Substance: ISOSORBIDE MONONITRATE
     Indication: ANGINA PECTORIS
     Dosage: 60 MG, 2X/DAY
  4. CARDIZEM CD [Concomitant]
     Active Substance: DILTIAZEM HYDROCHLORIDE
     Indication: BLOOD PRESSURE MEASUREMENT
     Dosage: 120 MG, DAILY
  5. ACIPHEX [Concomitant]
     Active Substance: RABEPRAZOLE SODIUM
     Indication: DYSPEPSIA
     Dosage: 20 MG, 2X/DAY
  6. IMDUR [Concomitant]
     Active Substance: ISOSORBIDE MONONITRATE
     Indication: CHEST PAIN

REACTIONS (2)
  - Palpitations [Recovered/Resolved]
  - Dizziness [Recovered/Resolved]
